FAERS Safety Report 7614380-7 (Version None)
Quarter: 2011Q3

REPORT INFORMATION
  Report Type: 
  Country: None (occurrence: None)
  Receive Date: 20110708
  Receipt Date: 20110627
  Transmission Date: 20111222
  Serious: Yes (Death)
  Sender: FDA-Public Use
  Company Number: OPER20110148

PATIENT
  Age: 38 Year
  Sex: Male
  Weight: 107.9561 kg

DRUGS (3)
  1. OPANA ER [Suspect]
     Indication: DRUG ABUSE
     Dosage: ORAL
     Route: 048
  2. ETHANOL (ETHANOL) (SOLUTION) [Suspect]
     Indication: ALCOHOL ABUSE
     Dosage: ORAL
     Route: 048
  3. THC (CANNABIS SATIVA) (INHALANT) [Suspect]
     Indication: DRUG ABUSE
     Dosage: INHALATION
     Route: 055

REACTIONS (7)
  - TOXICITY TO VARIOUS AGENTS [None]
  - NEPHROSCLEROSIS [None]
  - DRUG ABUSE [None]
  - ATELECTASIS [None]
  - PULMONARY OEDEMA [None]
  - HYPERTENSIVE HEART DISEASE [None]
  - HEPATIC CONGESTION [None]
